FAERS Safety Report 7928385-X (Version None)
Quarter: 2011Q4

REPORT INFORMATION
  Report Type: 
  Country: None (occurrence: None)
  Receive Date: 20111118
  Receipt Date: 20111111
  Transmission Date: 20120403
  Serious: Yes (Other)
  Sender: FDA-Public Use
  Company Number: US-AMGEN-KDL246619

PATIENT
  Age: 27 Year
  Sex: Female

DRUGS (2)
  1. SULFASALAZINE [Concomitant]
     Dosage: 50 MG, QWK
     Dates: start: 20110827
  2. ENBREL [Suspect]
     Indication: ANKYLOSING SPONDYLITIS
     Dosage: 50 MG, QWK
     Route: 058
     Dates: start: 20010827

REACTIONS (21)
  - MEMORY IMPAIRMENT [None]
  - DYSPNOEA EXERTIONAL [None]
  - DIZZINESS [None]
  - DENTAL CARIES [None]
  - ALOPECIA [None]
  - NECK PAIN [None]
  - LYMPHADENOPATHY [None]
  - ANXIETY [None]
  - INJECTION SITE WARMTH [None]
  - INJECTION SITE SWELLING [None]
  - TOOTHACHE [None]
  - INJECTION SITE PRURITUS [None]
  - SINUSITIS [None]
  - INJECTION SITE PAIN [None]
  - INJECTION SITE ERYTHEMA [None]
  - POST-TRAUMATIC STRESS DISORDER [None]
  - WEIGHT INCREASED [None]
  - MUSCULOSKELETAL STIFFNESS [None]
  - FATIGUE [None]
  - BACK PAIN [None]
  - LYME DISEASE [None]
